FAERS Safety Report 9284085 (Version 1)
Quarter: 2013Q2

REPORT INFORMATION
  Report Type: Spontaneous
  Country: FR (occurrence: None)
  Receive Date: 20130502
  Receipt Date: 20130502
  Transmission Date: 20140414
  Serious: Yes (Hospitalization, Other)
  Sender: FDA-Public Use
  Company Number: SYM-2013-03123

PATIENT
  Age: 93 Year
  Sex: Male

DRUGS (9)
  1. FLAGYL [Suspect]
     Route: 042
     Dates: start: 20130102, end: 20130104
  2. DOLIPRANE [Suspect]
     Route: 048
     Dates: start: 20121229, end: 20121230
  3. LOVENOX [Suspect]
     Dates: start: 20121230, end: 20130118
  4. TOPALGIC LP [Suspect]
     Route: 048
     Dates: start: 20121230, end: 20121230
  5. SPASFON [Suspect]
     Dosage: 2 UNITS, 3 IN 1 D, ORAL
     Dates: start: 20130105, end: 20130117
  6. VANCOMYCIN HYDROCHLORIDE [Suspect]
     Dates: start: 20130103, end: 20130110
  7. INEXIUM [Suspect]
     Route: 048
     Dates: start: 20130105, end: 20130117
  8. CEFTRIAXONE [Suspect]
     Route: 042
     Dates: start: 20130102, end: 20130103
  9. PARACETAMOL [Suspect]
     Route: 042
     Dates: start: 20121231, end: 20130104

REACTIONS (2)
  - Drug hypersensitivity [None]
  - Renal failure acute [None]
